FAERS Safety Report 11723435 (Version 2)
Quarter: 2015Q4

REPORT INFORMATION
  Report Type: Report from Study
  Country: US (occurrence: US)
  Receive Date: 20151111
  Receipt Date: 20151124
  Transmission Date: 20160304
  Serious: Yes (Hospitalization)
  Sender: FDA-Public Use
  Company Number: US-ACTELION-A-NJ2015-126939

PATIENT
  Age: 72 Year
  Sex: Female

DRUGS (5)
  1. MACITENTAN [Suspect]
     Active Substance: MACITENTAN
     Indication: PULMONARY ARTERIAL HYPERTENSION
     Dosage: 10 MG, QD
     Route: 048
     Dates: start: 20150612, end: 20151029
  2. MACITENTAN [Suspect]
     Active Substance: MACITENTAN
     Dosage: 10 MG, QD
     Route: 048
  3. XARELTO [Concomitant]
     Active Substance: RIVAROXABAN
  4. RIOCIGUAT [Concomitant]
     Active Substance: RIOCIGUAT
     Dosage: UNK
     Route: 048
  5. RIOCIGUAT [Concomitant]
     Active Substance: RIOCIGUAT
     Dosage: UNK
     Dates: end: 20151029

REACTIONS (2)
  - Gastrointestinal haemorrhage [Unknown]
  - Rectal haemorrhage [Unknown]
